FAERS Safety Report 6543195-6 (Version None)
Quarter: 2010Q1

REPORT INFORMATION
  Report Type: 
  Country: None (occurrence: None)
  Receive Date: 20100106
  Receipt Date: 20091221
  Transmission Date: 20100710
  Serious: No
  Sender: FDA-Public Use
  Company Number: 2009-00903

PATIENT
  Age: 77 Year
  Sex: Male
  Weight: 81.6475 kg

DRUGS (1)
  1. COLD REMEDY GEL SWABS [Suspect]
     Dosage: BID - 3 DAYS
     Dates: start: 20071214, end: 20091217

REACTIONS (1)
  - ANOSMIA [None]
